FAERS Safety Report 6277510-8 (Version None)
Quarter: 2009Q3

REPORT INFORMATION
  Report Type: 
  Country: None (occurrence: None)
  Receive Date: 20090717
  Receipt Date: 20090717
  Transmission Date: 20100115
  Serious: Yes (Life-Threatening, Hospitalization)
  Sender: FDA-Public Use
  Company Number: None

PATIENT
  Weight: 104.3273 kg

DRUGS (1)
  1. FLEET PHOSPHO SODA 2 BOTTLES PER PROCEDURE FLEET [Suspect]

REACTIONS (1)
  - RENAL FAILURE [None]
